FAERS Safety Report 4777936-5 (Version None)
Quarter: 2005Q3

REPORT INFORMATION
  Report Type: 
  Country: None (occurrence: None)
  Receive Date: 20050921
  Receipt Date: 20050901
  Transmission Date: 20060218
  Serious: Yes (Other)
  Sender: FDA-Public Use
  Company Number: GBS050918338

PATIENT
  Age: 16 Year
  Sex: Male

DRUGS (3)
  1. STRATTERA [Suspect]
     Indication: ATTENTION DEFICIT/HYPERACTIVITY DISORDER
  2. EPILIM (VALPROATE SODIUM) [Concomitant]
  3. ALCOHOL [Concomitant]

REACTIONS (2)
  - ALCOHOL USE [None]
  - CONVULSION [None]
